FAERS Safety Report 7736185-9 (Version None)
Quarter: 2011Q3

REPORT INFORMATION
  Report Type: 
  Country: None (occurrence: None)
  Receive Date: 20110908
  Receipt Date: 20110826
  Transmission Date: 20111222
  Serious: Yes (Life-Threatening, Hospitalization)
  Sender: FDA-Public Use
  Company Number: RS-CELGENEUS-308-21880-11080345

PATIENT
  Sex: Male
  Weight: 61 kg

DRUGS (3)
  1. REVLIMID [Suspect]
     Indication: MULTIPLE MYELOMA
     Dosage: 25 MILLIGRAM
     Route: 048
     Dates: start: 20110721, end: 20110728
  2. POTASSIUM [Concomitant]
     Dosage: 30 MILLIGRAM
     Route: 041
     Dates: start: 20110730, end: 20110730
  3. DEXAMETHASONE [Suspect]
     Indication: MULTIPLE MYELOMA
     Dosage: D 1,8, 15, 22
     Route: 048
     Dates: start: 20110721

REACTIONS (2)
  - HYPERPYREXIA [None]
  - PYREXIA [None]
